FAERS Safety Report 9678987 (Version 1)
Quarter: 2013Q4

REPORT INFORMATION
  Report Type: Spontaneous
  Country: US (occurrence: None)
  Receive Date: 20131107
  Receipt Date: 20131107
  Transmission Date: 20140711
  Serious: Yes (Other)
  Sender: FDA-Public Use
  Company Number: INT_00326_2013

PATIENT
  Age: 13 Year
  Sex: Male

DRUGS (6)
  1. CEFEPIME [Suspect]
     Indication: ANTIBIOTIC THERAPY
     Route: 042
  2. CLINDAMYCIN [Suspect]
     Indication: PRODUCT USED FOR UNKNOWN INDICATION
  3. VANCOMYCIN [Suspect]
     Indication: PRODUCT USED FOR UNKNOWN INDICATION
  4. AMOXI-CLACULANICO [Concomitant]
  5. GENTAMICIN [Concomitant]
  6. ITRACONAZOLE [Concomitant]

REACTIONS (17)
  - Tubulointerstitial nephritis [None]
  - Tubulointerstitial nephritis [None]
  - Blood pressure systolic increased [None]
  - Blood pressure increased [None]
  - Local swelling [None]
  - Incision site pain [None]
  - Incision site vesicles [None]
  - Incision site haemorrhage [None]
  - Haemoglobin decreased [None]
  - Neutrophil count increased [None]
  - Lymphocyte count increased [None]
  - Blood sodium decreased [None]
  - Blood chloride decreased [None]
  - White blood cell count decreased [None]
  - Drug level increased [None]
  - Blastomycosis [None]
  - Haemodialysis [None]
